FAERS Safety Report 9491448 (Version 1)
Quarter: 2013Q1

REPORT INFORMATION
  Report Type: Not Available
  Country: US (occurrence: US)
  Receive Date: 20120619
  Receipt Date: 20120619
  Transmission Date: 20140127
  Serious: No
  Sender: FDA-Public Use
  Company Number: US-LUNDBECK-DKLU1076862

PATIENT
  Age: 10 Year
  Sex: Female

DRUGS (2)
  1. ONFI [Suspect]
     Indication: CONVULSION
     Route: 048
     Dates: start: 201201
  2. KEPPRA [Suspect]
     Indication: CONVULSION
     Dates: start: 201201

REACTIONS (4)
  - Pollakiuria [Not Recovered/Not Resolved]
  - Aggression [Not Recovered/Not Resolved]
  - Insomnia [Not Recovered/Not Resolved]
  - Anxiety [Not Recovered/Not Resolved]
